FAERS Safety Report 6161079-2 (Version None)
Quarter: 2009Q2

REPORT INFORMATION
  Report Type: 
  Country: None (occurrence: None)
  Receive Date: 20090421
  Receipt Date: 20090408
  Transmission Date: 20091009
  Serious: Yes (Life-Threatening, Other)
  Sender: FDA-Public Use
  Company Number: JP-PFIZER INC-2009198423

PATIENT

DRUGS (5)
  1. ZOLOFT [Suspect]
     Indication: DEPRESSION
     Dosage: 50 MG, UNK
     Route: 048
     Dates: start: 20081020, end: 20090317
  2. CORTRIL [Concomitant]
     Route: 048
     Dates: start: 20081020, end: 20090317
  3. THYRADIN-S [Concomitant]
     Route: 048
     Dates: start: 20081020, end: 20090317
  4. ROHYPNOL [Concomitant]
     Route: 048
     Dates: start: 20090303, end: 20090316
  5. BENZALIN [Concomitant]
     Route: 048
     Dates: start: 20090303, end: 20090316

REACTIONS (5)
  - GAIT DISTURBANCE [None]
  - HYPERNATRAEMIA [None]
  - PYREXIA [None]
  - RASH [None]
  - SOMNOLENCE [None]
